FAERS Safety Report 8450259 (Version 4)
Quarter: 2013Q3

REPORT INFORMATION
  Report Type: Report from Study
  Country: BR (occurrence: BR)
  Receive Date: 20120309
  Receipt Date: 20130729
  Transmission Date: 20140515
  Serious: Yes (Hospitalization)
  Sender: FDA-Public Use
  Company Number: BR-ELI_LILLY_AND_COMPANY-BR201202008393

PATIENT
  Sex: Female
  Weight: 45 kg

DRUGS (1)
  1. TERIPARATIDE [Suspect]
     Indication: OSTEOPOROSIS
     Dosage: UNK, UNKNOWN
     Route: 058

REACTIONS (4)
  - Infarction [Recovered/Resolved]
  - Bone fissure [Unknown]
  - Asthenia [Unknown]
  - Intentional drug misuse [Unknown]
